FAERS Safety Report 5669368-2 (Version None)
Quarter: 2008Q1

REPORT INFORMATION
  Report Type: 
  Country: None (occurrence: None)
  Receive Date: 20080317
  Receipt Date: 20080305
  Transmission Date: 20080703
  Serious: Yes (Hospitalization)
  Sender: FDA-Public Use
  Company Number: US-MERCK-0706USA03728

PATIENT
  Age: 72 Year
  Sex: Male

DRUGS (2)
  1. FOSAMAX [Suspect]
     Indication: OSTEOPOROSIS
     Route: 048
     Dates: start: 20010212, end: 20060829
  2. FOSAMAX [Suspect]
     Route: 048
     Dates: start: 19990104, end: 20010101

REACTIONS (12)
  - BLOOD CHOLESTEROL INCREASED [None]
  - BLOOD TRIGLYCERIDES INCREASED [None]
  - DEHYDRATION [None]
  - DENTAL CARIES [None]
  - GASTROOESOPHAGEAL REFLUX DISEASE [None]
  - HYPOTENSION [None]
  - LOOSE TOOTH [None]
  - MASTICATION DISORDER [None]
  - MICTURITION DISORDER [None]
  - ORAL INFECTION [None]
  - PAIN IN JAW [None]
  - TOOTH LOSS [None]
